FAERS Safety Report 16078804 (Version 1)
Quarter: 2019Q1

REPORT INFORMATION
  Report Type: Spontaneous
  Country: US (occurrence: US)
  Receive Date: 20190315
  Receipt Date: 20190315
  Transmission Date: 20190418
  Serious: No
  Sender: FDA-Public Use
  Company Number: US-PERRIGO-18US001661

PATIENT
  Sex: Female

DRUGS (1)
  1. SCOPOLAMINE [Suspect]
     Active Substance: SCOPOLAMINE
     Indication: MOTION SICKNESS
     Dosage: UNK, UNK
     Route: 062
     Dates: start: 201802, end: 20180213

REACTIONS (2)
  - Pupil fixed [Not Recovered/Not Resolved]
  - Pupillary light reflex tests abnormal [Not Recovered/Not Resolved]

NARRATIVE: CASE EVENT DATE: 20180213
